FAERS Safety Report 6145800-5 (Version None)
Quarter: 2009Q2

REPORT INFORMATION
  Report Type: 
  Country: None (occurrence: None)
  Receive Date: 20090407
  Receipt Date: 20090401
  Transmission Date: 20091009
  Serious: Yes (Hospitalization, Other)
  Sender: FDA-Public Use
  Company Number: US-ELI_LILLY_AND_COMPANY-US200904000357

PATIENT
  Sex: Male
  Weight: 120.18 kg

DRUGS (30)
  1. BYETTA [Suspect]
     Indication: TYPE 2 DIABETES MELLITUS
     Dosage: 5 UG, 2/D
     Route: 058
  2. BYETTA [Suspect]
     Dosage: 10 UG, 2/D
     Route: 058
     Dates: end: 20080901
  3. BYETTA [Suspect]
     Dosage: 5 UG, 2/D
     Route: 058
     Dates: start: 20081228
  4. LEVEMIR [Concomitant]
     Indication: DIABETES MELLITUS
     Dosage: 65 U, EACH EVENING
     Dates: start: 20080901
  5. LEVEMIR [Concomitant]
     Dosage: 40 U, EACH EVENING
  6. LEVEMIR [Concomitant]
     Dosage: 45 U, EACH EVENING
  7. LEVEMIR [Concomitant]
     Dosage: 50 U, EACH EVENING
  8. PRANDIN [Concomitant]
     Indication: DIABETES MELLITUS
     Dosage: 1 MG, DAILY (1/D)
     Dates: end: 20081228
  9. NITROGLYCERIN [Concomitant]
     Indication: CHEST PAIN
     Dosage: UNK, AS NEEDED
     Dates: start: 20070101
  10. DIOVAN [Concomitant]
     Indication: CARDIAC DISORDER
     Dosage: 80 MG, DAILY (1/D)
     Dates: end: 20080925
  11. RAMIPRIL [Concomitant]
     Indication: CARDIAC DISORDER
     Dosage: 2.5 MG, DAILY (1/D)
     Dates: start: 20080925
  12. FUROSEMIDE [Concomitant]
     Dosage: 40 MG, 2/D
     Dates: end: 20080901
  13. FUROSEMIDE [Concomitant]
     Dosage: 40 MG, DAILY (1/D)
     Dates: start: 20080925
  14. LIPITOR [Concomitant]
     Indication: BLOOD CHOLESTEROL
     Dosage: 40 MG, DAILY (1/D)
     Dates: end: 20080901
  15. LIPITOR [Concomitant]
     Dosage: 80 MG, DAILY (1/D)
     Dates: start: 20080925
  16. METOPROLOL [Concomitant]
     Dosage: 50 MG, 2/D
     Dates: end: 20080901
  17. METOPROLOL [Concomitant]
     Dosage: 50 MG, 2/D
     Dates: start: 20080925
  18. OMEPRAZOLE [Concomitant]
     Dosage: 20 MG, DAILY (1/D)
     Dates: start: 20080925
  19. LEXAPRO [Concomitant]
     Indication: DEPRESSION
     Dosage: 10 MG, EACH EVENING
     Dates: start: 20040101
  20. LEVOTHYROXINE SODIUM [Concomitant]
     Dosage: 50 UG, DAILY (1/D)
     Dates: start: 20060101
  21. XALATAN [Concomitant]
     Indication: GLAUCOMA
     Dosage: UNK, EACH EVENING
  22. ASPIRIN [Concomitant]
     Dosage: 81 MG, DAILY (1/D)
  23. ASPIRIN [Concomitant]
     Dosage: 325 MG, DAILY (1/D)
     Dates: start: 20080901
  24. ASPIRIN [Concomitant]
     Dosage: 81 MG, DAILY (1/D)
     Dates: start: 20090112
  25. LOVAZA [Concomitant]
     Dosage: 1200 MG, UNKNOWN
     Dates: end: 20080901
  26. DAILY VITAMINS [Concomitant]
     Dosage: UNK, UNKNOWN
     Dates: end: 20080901
  27. ACETYLCARNITINE [Concomitant]
     Dosage: 500 MG, UNKNOWN
     Dates: end: 20080901
  28. SAW PALMETTO [Concomitant]
     Dosage: 450 MG, UNKNOWN
     Dates: end: 20080901
  29. VITAMIN B-12 [Concomitant]
     Dosage: UNK, UNKNOWN
     Dates: end: 20080901
  30. OXYCODONE HCL AND ACETAMINOPHEN [Concomitant]
     Dates: start: 20080925, end: 20080925

REACTIONS (5)
  - BLOOD GLUCOSE DECREASED [None]
  - BLOOD GLUCOSE INCREASED [None]
  - CHEST PAIN [None]
  - MIGRAINE [None]
  - MYOCARDIAL INFARCTION [None]
